FAERS Safety Report 23572042 (Version 2)
Quarter: 2024Q2

REPORT INFORMATION
  Report Type: Spontaneous
  Country: US (occurrence: US)
  Receive Date: 20240227
  Receipt Date: 20240529
  Transmission Date: 20240716
  Serious: No
  Sender: FDA-Public Use
  Company Number: US-SA-SAC20240220001371

PATIENT
  Age: 49 Year
  Sex: Female

DRUGS (2)
  1. DUPIXENT [Suspect]
     Active Substance: DUPILUMAB
     Indication: Eczema
     Dosage: 2 DF, 1X
     Route: 058
     Dates: start: 20231219, end: 20231219
  2. DUPIXENT [Suspect]
     Active Substance: DUPILUMAB
     Indication: Chronic sinusitis
     Dosage: 300 MG, QOW
     Route: 058

REACTIONS (4)
  - Skin exfoliation [Unknown]
  - Rash [Not Recovered/Not Resolved]
  - Arthralgia [Unknown]
  - Product use in unapproved indication [Unknown]

NARRATIVE: CASE EVENT DATE: 20231219
